FAERS Safety Report 16972024 (Version 2)
Quarter: 2019Q4

REPORT INFORMATION
  Report Type: Report from Study
  Country: US (occurrence: US)
  Receive Date: 20191029
  Receipt Date: 20191127
  Transmission Date: 20200122
  Serious: Yes (Death)
  Sender: FDA-Public Use
  Company Number: US-ALLERGAN-1943013US

PATIENT
  Sex: Male

DRUGS (1)
  1. LINACLOTIDE 290MCG CAP (11273X) [Suspect]
     Active Substance: LINACLOTIDE
     Indication: PRODUCT USED FOR UNKNOWN INDICATION
     Route: 048

REACTIONS (3)
  - Bronchitis [Fatal]
  - Pneumonia [Fatal]
  - Cardiac disorder [Fatal]
